FAERS Safety Report 9869597 (Version 1)
Quarter: 2014Q1

REPORT INFORMATION
  Report Type: Spontaneous
  Country: IT (occurrence: None)
  Receive Date: 20140131
  Receipt Date: 20140131
  Transmission Date: 20141002
  Serious: Yes (Other)
  Sender: FDA-Public Use
  Company Number: AUR-APL-2014-00328

PATIENT
  Age: 45 Year
  Sex: Female

DRUGS (3)
  1. GABAPENTIN [Suspect]
     Indication: PRODUCT USED FOR UNKNOWN INDICATION
     Dosage: 1 D
     Route: 048
     Dates: start: 20131115, end: 20131130
  2. LORAZEPAM(LORAZEPAM) [Suspect]
     Indication: PRODUCT USED FOR UNKNOWN INDICATION
     Dosage: 1D
     Route: 048
     Dates: start: 20131115, end: 20131130
  3. WELLBUTRIN (BUPROPION HYDROCHLORIDE) [Suspect]
     Indication: PRODUCT USED FOR UNKNOWN INDICATION
     Route: 048
     Dates: start: 20131115, end: 20131130

REACTIONS (4)
  - Abdominal pain upper [None]
  - Nausea [None]
  - Vertigo [None]
  - Balance disorder [None]
